FAERS Safety Report 17133343 (Version 1)
Quarter: 2019Q4

REPORT INFORMATION
  Report Type: Spontaneous
  Country: US (occurrence: US)
  Receive Date: 20191210
  Receipt Date: 20191210
  Transmission Date: 20200122
  Serious: No
  Sender: FDA-Public Use
  Company Number: US-UCBSA-2016035014

PATIENT
  Age: 47 Year
  Sex: Male
  Weight: 104 kg

DRUGS (4)
  1. KEPPRA XR [Suspect]
     Active Substance: LEVETIRACETAM
     Indication: GENERALISED TONIC-CLONIC SEIZURE
     Dosage: UNKNOWN DOSE FROM 5 YEARS
  2. KEPPRA XR [Suspect]
     Active Substance: LEVETIRACETAM
     Dosage: 750MG STRENGTH / TOTAL DAILY DOSE: 3500 MG
  3. CELEXA [Concomitant]
     Active Substance: CITALOPRAM HYDROBROMIDE
     Indication: PRODUCT USED FOR UNKNOWN INDICATION
  4. KEPPRA XR [Suspect]
     Active Substance: LEVETIRACETAM
     Dosage: (500MG) STRENGTH/ TOTAL DAILY DOSE: 3500 MG

REACTIONS (3)
  - Tremor [Recovered/Resolved]
  - Product quality issue [Unknown]
  - Intentional product misuse [Unknown]

NARRATIVE: CASE EVENT DATE: 20160801
